FAERS Safety Report 14787520 (Version 3)
Quarter: 2018Q4

REPORT INFORMATION
  Report Type: Spontaneous
  Country: FR (occurrence: FR)
  Receive Date: 20180421
  Receipt Date: 20181112
  Transmission Date: 20190204
  Serious: Yes (Other)
  Sender: FDA-Public Use
  Company Number: FR-AUROBINDO-AUR-APL-2018-021115

PATIENT
  Age: 70 Year
  Sex: Male

DRUGS (24)
  1. ADVAGRAF [Concomitant]
     Active Substance: TACROLIMUS
     Dosage: 4 MILLIGRAM, ONCE A DAY
     Route: 065
     Dates: start: 20160728
  2. SOLUPRED                           /00016201/ [Concomitant]
     Active Substance: PREDNISOLONE
     Indication: PRODUCT USED FOR UNKNOWN INDICATION
     Dosage: 2 MILLIGRAM, ONCE A DAY
     Route: 065
     Dates: start: 20150407, end: 20150414
  3. SOLUPRED                           /00016201/ [Concomitant]
     Active Substance: PREDNISOLONE
     Dosage: 20 MILLIGRAM, ONCE A DAY
     Route: 065
     Dates: start: 20141105, end: 20141222
  4. CORTANCYL [Concomitant]
     Active Substance: PREDNISONE
     Dosage: 2 MILLIGRAM, ONCE A DAY
     Route: 065
     Dates: start: 20150329, end: 20150406
  5. CORTANCYL [Concomitant]
     Active Substance: PREDNISONE
     Dosage: 1 MILLIGRAM, ONCE A DAY
     Route: 065
     Dates: start: 20150407, end: 20150520
  6. METFORMIN [Suspect]
     Active Substance: METFORMIN HYDROCHLORIDE
     Indication: PRODUCT USED FOR UNKNOWN INDICATION
     Dosage: UNK
     Route: 065
  7. ADVAGRAF [Concomitant]
     Active Substance: TACROLIMUS
     Dosage: 3.5 MILLIGRAM, ONCE A DAY
     Route: 065
     Dates: start: 20170216
  8. CERTICAN [Suspect]
     Active Substance: EVEROLIMUS
     Indication: LIVER TRANSPLANT
     Dosage: 2 MILLIGRAM, ONCE A DAY
     Route: 065
     Dates: start: 20141031, end: 20150108
  9. SOLUPRED                           /00016201/ [Concomitant]
     Active Substance: PREDNISOLONE
     Dosage: 15 MILLIGRAM, ONCE A DAY
     Route: 065
     Dates: start: 20141223, end: 20150119
  10. SOLUPRED                           /00016201/ [Concomitant]
     Active Substance: PREDNISOLONE
     Dosage: 4 MILLIGRAM, ONCE A DAY
     Route: 016
     Dates: start: 20150321, end: 20150328
  11. CORTANCYL [Concomitant]
     Active Substance: PREDNISONE
     Indication: PRODUCT USED FOR UNKNOWN INDICATION
     Dosage: 4 MILLIGRAM, ONCE A DAY
     Route: 065
     Dates: start: 20150313, end: 20150320
  12. METFORMIN [Suspect]
     Active Substance: METFORMIN HYDROCHLORIDE
     Dosage: 1500 MILLIGRAM, ONCE A DAY, 500 MG, TID
     Route: 065
     Dates: start: 20140708
  13. MYFORTIC [Suspect]
     Active Substance: MYCOPHENOLATE SODIUM
     Indication: IMMUNOSUPPRESSANT DRUG THERAPY
     Dosage: 180 MILLIGRAM, ONCE A DAY
     Route: 065
     Dates: start: 20160512, end: 20170202
  14. SOLUPRED                           /00016201/ [Concomitant]
     Active Substance: PREDNISOLONE
     Dosage: 5 MILLIGRAM, ONCE A DAY
     Route: 065
     Dates: start: 20150313, end: 20150320
  15. CERTICAN [Suspect]
     Active Substance: EVEROLIMUS
     Indication: IMMUNOSUPPRESSANT DRUG THERAPY
     Dosage: 1 MILLIGRAM, ONCE A DAY
     Route: 065
     Dates: start: 20150313, end: 20150708
  16. MYFORTIC [Suspect]
     Active Substance: MYCOPHENOLATE SODIUM
     Indication: LIVER TRANSPLANT
     Dosage: 720 MILLIGRAM, ONCE A DAY
     Route: 065
     Dates: start: 20141031, end: 20160511
  17. ADVAGRAF [Concomitant]
     Active Substance: TACROLIMUS
     Indication: PRODUCT USED FOR UNKNOWN INDICATION
     Dosage: 5 MILLIGRAM, ONCE A DAY
     Route: 065
     Dates: start: 20150226
  18. ADVAGRAF [Concomitant]
     Active Substance: TACROLIMUS
     Dosage: 3 MILLIGRAM
     Route: 065
     Dates: start: 20171202
  19. SOLUPRED                           /00016201/ [Concomitant]
     Active Substance: PREDNISOLONE
     Dosage: 3 MILLIGRAM, ONCE A DAY
     Route: 065
     Dates: start: 20150329, end: 20150406
  20. SOLUPRED                           /00016201/ [Concomitant]
     Active Substance: PREDNISOLONE
     Dosage: 1 MILLIGRAM, ONCE A DAY
     Route: 065
     Dates: start: 20150415, end: 20150422
  21. CORTANCYL [Concomitant]
     Active Substance: PREDNISONE
     Dosage: 3 MILLIGRAM, ONCE A DAY
     Route: 065
     Dates: start: 20150321, end: 20150328
  22. CERTICAN [Suspect]
     Active Substance: EVEROLIMUS
     Dosage: 2.5 MILLIGRAM, ONCE A DAY
     Route: 065
     Dates: start: 20150109, end: 20150312
  23. ADVAGRAF [Concomitant]
     Active Substance: TACROLIMUS
     Dosage: 2.5 MILLIGRAM, ONCE A DAY
     Route: 065
     Dates: start: 20180323
  24. SOLUPRED                           /00016201/ [Concomitant]
     Active Substance: PREDNISOLONE
     Dosage: 10 MILLIGRAM, ONCE A DAY
     Route: 065
     Dates: start: 20150120, end: 20150312

REACTIONS (8)
  - Hypertensive crisis [Recovering/Resolving]
  - Extrasystoles [Recovered/Resolved]
  - Asthenia [Recovered/Resolved]
  - Oedema peripheral [Recovered/Resolved]
  - Diarrhoea [Recovered/Resolved]
  - Abdominal pain [Recovered/Resolved]
  - Chest pain [Not Recovered/Not Resolved]
  - Gout [Recovered/Resolved]

NARRATIVE: CASE EVENT DATE: 201703
